FAERS Safety Report 15231268 (Version 1)
Quarter: 2018Q3

REPORT INFORMATION
  Report Type: Spontaneous
  Country: US (occurrence: US)
  Receive Date: 20180802
  Receipt Date: 20180802
  Transmission Date: 20181010
  Serious: Yes (Hospitalization, Other)
  Sender: FDA-Public Use
  Company Number: US-MYLANLABS-2018M1057174

PATIENT
  Age: 67 Year
  Sex: Male

DRUGS (2)
  1. AMIODARONE [Suspect]
     Active Substance: AMIODARONE
     Indication: ISCHAEMIC CARDIOMYOPATHY
     Route: 065
  2. PREDNISONE. [Concomitant]
     Active Substance: PREDNISONE
     Indication: LUNG DISORDER
     Route: 065

REACTIONS (5)
  - Thyrotoxic crisis [Unknown]
  - Acute kidney injury [Unknown]
  - Ventricular tachycardia [Unknown]
  - Mental status changes [Unknown]
  - Paradoxical drug reaction [Unknown]
